FAERS Safety Report 9640529 (Version 2)
Quarter: 2013Q4

REPORT INFORMATION
  Report Type: Report from Study
  Country: US (occurrence: US)
  Receive Date: 20131023
  Receipt Date: 20131023
  Transmission Date: 20140711
  Serious: No
  Sender: FDA-Public Use
  Company Number: US-ABBVIE-13P-163-1063588-00

PATIENT
  Age: 31 Year
  Sex: Female
  Weight: 62.65 kg

DRUGS (2)
  1. LUPRON DEPOT [Suspect]
     Indication: ENDOMETRIOSIS
     Route: 030
     Dates: start: 20130207
  2. ADD BACK THERAPY [Suspect]
     Indication: PRODUCT USED FOR UNKNOWN INDICATION
     Dates: end: 20130410

REACTIONS (12)
  - Abdominal distension [Unknown]
  - Respiratory disorder [Unknown]
  - Wheezing [Unknown]
  - Cough [Unknown]
  - Respiratory tract congestion [Unknown]
  - Adverse reaction [Unknown]
  - Oropharyngeal pain [Unknown]
  - Pyrexia [Unknown]
  - Menstruation irregular [Unknown]
  - Headache [Not Recovered/Not Resolved]
  - Hot flush [Unknown]
  - Palpitations [Not Recovered/Not Resolved]
